FAERS Safety Report 5399196-7 (Version None)
Quarter: 2007Q3

REPORT INFORMATION
  Report Type: 
  Country: None (occurrence: None)
  Receive Date: 20070727
  Receipt Date: 20070720
  Transmission Date: 20080115
  Serious: Yes (Other)
  Sender: FDA-Public Use
  Company Number: JP-AVENTIS-200711673JP

PATIENT
  Age: 54 Year
  Sex: Male
  Weight: 52 kg

DRUGS (6)
  1. TAXOTERE [Suspect]
     Indication: NON-SMALL CELL LUNG CANCER
     Dosage: DOSE: (100 MG)
     Route: 041
     Dates: start: 20070618, end: 20070618
  2. KYTRIL                             /01178101/ [Concomitant]
     Indication: NON-SMALL CELL LUNG CANCER
     Route: 042
     Dates: start: 20070207
  3. ZANTAC 150 [Concomitant]
     Indication: NON-SMALL CELL LUNG CANCER
     Route: 042
     Dates: start: 20070207
  4. DECADRON [Concomitant]
     Indication: PROPHYLAXIS
     Route: 042
     Dates: start: 20070207
  5. DECADRON [Concomitant]
     Indication: ALLERGY PROPHYLAXIS
     Route: 042
     Dates: start: 20070207
  6. DECADRON [Concomitant]
     Indication: NON-SMALL CELL LUNG CANCER
     Route: 042
     Dates: start: 20070207

REACTIONS (2)
  - AMNESIA [None]
  - HYPERSENSITIVITY [None]
